FAERS Safety Report 9404175 (Version 1)
Quarter: 2013Q3

REPORT INFORMATION
  Report Type: Spontaneous
  Country: GB (occurrence: None)
  Receive Date: 20130715
  Receipt Date: 20130715
  Transmission Date: 20140515
  Serious: Yes (Death, Other)
  Sender: FDA-Public Use
  Company Number: GER/UKI/13/0030482

PATIENT
  Age: 69 Year
  Sex: Female

DRUGS (8)
  1. OLANZAPINE (OLANZAPINE) [Suspect]
     Indication: PRODUCT USED FOR UNKNOWN INDICATION
     Dosage: 10 MG , 1 IN 1 D
  2. SERTRALINE [Suspect]
     Indication: PRODUCT USED FOR UNKNOWN INDICATION
     Dosage: 150 MG ,1 IN 1 D
  3. AMLODIPINE (AMLODIPINE) [Concomitant]
  4. ASPIRIN (ACETYLSALICYLIC ACID) [Concomitant]
  5. CALCICHEW (CALCIUM CARBONATE) [Concomitant]
  6. CARBIMAZOLE (CARBIMAZOLE) [Concomitant]
  7. DIAZEPAM (DIAZEPAM) [Concomitant]
  8. SIMVASTATIN (SIMVASTATIN) [Concomitant]

REACTIONS (3)
  - Fall [None]
  - Drug level increased [None]
  - Overdose [None]
